FAERS Safety Report 13010411 (Version 1)
Quarter: 2016Q4

REPORT INFORMATION
  Report Type: Spontaneous
  Country: US (occurrence: US)
  Receive Date: 20161208
  Receipt Date: 20161208
  Transmission Date: 20170207
  Serious: Yes (Life-Threatening, Other)
  Sender: FDA-Public Use
  Company Number: None

PATIENT
  Age: 63 Year
  Sex: Male
  Weight: 113.05 kg

DRUGS (1)
  1. BUPROPION XL 150MG [Suspect]
     Active Substance: BUPROPION
     Indication: PERSISTENT DEPRESSIVE DISORDER
     Route: 048
     Dates: start: 20130601, end: 20141030

REACTIONS (7)
  - Drug ineffective [None]
  - Decreased interest [None]
  - Product substitution issue [None]
  - Lethargy [None]
  - Suicidal ideation [None]
  - Irritability [None]
  - Apathy [None]

NARRATIVE: CASE EVENT DATE: 20141017
